FAERS Safety Report 4263741-5 (Version None)
Quarter: 2004Q1

REPORT INFORMATION
  Report Type: 
  Country: None (occurrence: None)
  Receive Date: 20040102
  Receipt Date: 20031218
  Transmission Date: 20041129
  Serious: Yes (Disabling)
  Sender: FDA-Public Use
  Company Number: CIP03003457

PATIENT
  Age: 69 Year
  Sex: Female

DRUGS (4)
  1. ACTONEL [Suspect]
     Indication: OSTEOPOROSIS
     Dosage: 35 MG ONCE WEEKLY, ORAL
     Route: 048
     Dates: start: 20031202
  2. NIFEDIPINE [Concomitant]
  3. MULTIVITAMIN AND MINERAL SUPPLEMENT (VITAMINS NOS, MINERAL NOS) [Concomitant]
  4. CALCIUM CITRATE (CALCIUM CITRATE) [Concomitant]

REACTIONS (6)
  - BACK PAIN [None]
  - CHEST DISCOMFORT [None]
  - DYSPNOEA [None]
  - FEELING ABNORMAL [None]
  - MYALGIA [None]
  - PARALYSIS [None]
